FAERS Safety Report 10414813 (Version 1)
Quarter: 2014Q2

REPORT INFORMATION
  Report Type: Spontaneous
  Country: US (occurrence: None)
  Receive Date: 20140604
  Receipt Date: 20140604
  Transmission Date: 20141212
  Serious: No
  Sender: FDA-Public Use
  Company Number: 163-POMAL-14033980

PATIENT
  Age: 69 Year
  Sex: Female
  Weight: 50.8 kg

DRUGS (6)
  1. POMALYST (POMALIDOMIDE) (4 MILLIGRAM, CAPSULES) [Suspect]
     Indication: PLASMA CELL MYELOMA
     Route: 048
     Dates: start: 201304
  2. AMOXICILLIN [Concomitant]
  3. CLARITHROMYCIN [Concomitant]
  4. DEXAMETHASONE [Concomitant]
  5. HCTZ (HYDROCHLOROTHIAZIDE) [Concomitant]
  6. METFORMIN [Concomitant]

REACTIONS (1)
  - Bone density decreased [None]
